FAERS Safety Report 17047837 (Version 2)
Quarter: 2020Q1

REPORT INFORMATION
  Report Type: Spontaneous
  Country: JP (occurrence: JP)
  Receive Date: 20191119
  Receipt Date: 20200101
  Transmission Date: 20200409
  Serious: Yes (Death, Hospitalization)
  Sender: FDA-Public Use
  Company Number: JP-ACTELION-A-CH2019-198313

PATIENT
  Age: 48 Year
  Sex: Female

DRUGS (5)
  1. ENDOXAN [Concomitant]
     Active Substance: CYCLOPHOSPHAMIDE
     Indication: SKIN ULCER
  2. SILDENAFIL CITRATE. [Concomitant]
     Active Substance: SILDENAFIL CITRATE
     Dosage: UNK
     Dates: start: 2005
  3. TRACLEER [Suspect]
     Active Substance: BOSENTAN
     Indication: PULMONARY HYPERTENSION
     Dosage: 250 MG, QD
     Route: 048
     Dates: start: 2005
  4. ENDOXAN [Concomitant]
     Active Substance: CYCLOPHOSPHAMIDE
     Indication: CONCOMITANT DISEASE AGGRAVATED
  5. OXYGEN. [Concomitant]
     Active Substance: OXYGEN

REACTIONS (2)
  - Haemoptysis [Unknown]
  - Chronic respiratory failure [Fatal]

NARRATIVE: CASE EVENT DATE: 2010
